FAERS Safety Report 4469183-1 (Version None)
Quarter: 2004Q4

REPORT INFORMATION
  Report Type: 
  Country: None (occurrence: None)
  Receive Date: 20041005
  Receipt Date: 20041005
  Transmission Date: 20050328
  Serious: Yes (Other)
  Sender: FDA-Public Use
  Company Number: None

PATIENT
  Age: 55 Year
  Sex: Female

DRUGS (4)
  1. KETEK [Suspect]
     Indication: SINUSITIS
     Dosage: 1 DOSE
     Dates: start: 20040924
  2. RHINACORT [Concomitant]
  3. MUCINEX [Concomitant]
  4. COUMADIN [Concomitant]

REACTIONS (2)
  - DIARRHOEA [None]
  - GASTROENTERITIS [None]
